FAERS Safety Report 12619177 (Version 1)
Quarter: 2016Q3

REPORT INFORMATION
  Report Type: Spontaneous
  Country: US (occurrence: US)
  Receive Date: 20160803
  Receipt Date: 20160803
  Transmission Date: 20161109
  Serious: Yes (Other)
  Sender: FDA-Public Use
  Company Number: US-PFIZER INC-2016365338

PATIENT
  Age: 79 Year
  Sex: Female

DRUGS (1)
  1. PENICILLIN G PROCAINE. [Suspect]
     Active Substance: PENICILLIN G PROCAINE
     Dosage: UNK

REACTIONS (3)
  - Urticaria [Unknown]
  - Respiratory distress [Unknown]
  - Drug hypersensitivity [Unknown]
